FAERS Safety Report 7780532-9 (Version None)
Quarter: 2011Q3

REPORT INFORMATION
  Report Type: 
  Country: None (occurrence: None)
  Receive Date: 20110927
  Receipt Date: 20101117
  Transmission Date: 20111222
  Serious: No
  Sender: FDA-Public Use
  Company Number: US-ASTRAZENECA-2010SE55003

PATIENT
  Sex: Female
  Weight: 108.9 kg

DRUGS (6)
  1. SEROQUEL [Suspect]
     Dosage: AS NEEDED
     Route: 048
  2. SEROQUEL [Suspect]
     Indication: SLEEP DISORDER
     Route: 048
  3. SEROQUEL [Suspect]
     Indication: POST-TRAUMATIC STRESS DISORDER
     Route: 048
  4. SEROQUEL [Suspect]
     Dosage: AS NEEDED
     Route: 048
  5. SEROQUEL [Suspect]
     Dosage: AS NEEDED
     Route: 048
  6. SEROQUEL [Suspect]
     Indication: ANXIETY
     Route: 048

REACTIONS (6)
  - INAPPROPRIATE SCHEDULE OF DRUG ADMINISTRATION [None]
  - INTENTIONAL DRUG MISUSE [None]
  - FATIGUE [None]
  - INCREASED APPETITE [None]
  - ASTHENIA [None]
  - HANGOVER [None]
